FAERS Safety Report 21069800 (Version 2)
Quarter: 2024Q3

REPORT INFORMATION
  Report Type: Spontaneous
  Country: US (occurrence: US)
  Receive Date: 20220712
  Receipt Date: 20240722
  Transmission Date: 20241017
  Serious: No
  Sender: ASTELLAS
  Company Number: US-ASTELLAS-2021US035926

PATIENT
  Age: 60 Year
  Sex: Male

DRUGS (6)
  1. MYRBETRIQ [Suspect]
     Active Substance: MIRABEGRON
     Indication: Micturition urgency
     Route: 048
     Dates: start: 2021
  2. MYRBETRIQ [Suspect]
     Active Substance: MIRABEGRON
     Route: 048
  3. TAMSULOSIN [Concomitant]
     Active Substance: TAMSULOSIN
     Indication: Product used for unknown indication
     Dosage: UNK UNK, UNKNOWN FREQ.
     Route: 065
  4. LOSARTAN [Concomitant]
     Active Substance: LOSARTAN
     Indication: Product used for unknown indication
     Dosage: UNK UNK, UNKNOWN FREQ.
     Route: 065
  5. METFORMIN [Concomitant]
     Active Substance: METFORMIN HYDROCHLORIDE
     Indication: Product used for unknown indication
     Dosage: UNK UNK, UNKNOWN FREQ.
     Route: 065
  6. ATORVASTATIN [Concomitant]
     Active Substance: ATORVASTATIN
     Indication: Product used for unknown indication
     Dosage: UNK UNK, UNKNOWN FREQ.
     Route: 065

REACTIONS (6)
  - Feeling abnormal [Unknown]
  - Headache [Unknown]
  - Sinus pain [Unknown]
  - Vision blurred [Unknown]
  - Tooth abscess [Recovering/Resolving]
  - Gingival abscess [Recovering/Resolving]

NARRATIVE: CASE EVENT DATE: 20210901
